FAERS Safety Report 5275484-X (Version None)
Quarter: 2007Q1

REPORT INFORMATION
  Report Type: 
  Country: None (occurrence: None)
  Receive Date: 20070322
  Receipt Date: 20070322
  Transmission Date: 20070707
  Serious: Yes (Hospitalization)
  Sender: FDA-Public Use
  Company Number: None

PATIENT
  Age: 67 Year
  Sex: Male
  Weight: 97.0698 kg

DRUGS (16)
  1. IBUPROFEN [Suspect]
     Indication: TOOTHACHE
     Dosage: 200MG TID PRN ORALLY
     Route: 048
     Dates: start: 20070201, end: 20070209
  2. CITALOPRAM HYDROBROMIDE [Concomitant]
  3. FINASTERIDE [Concomitant]
  4. FLUNISOLIDE [Concomitant]
  5. FOLIC ACID [Concomitant]
  6. HYDROXYZINE HCL [Concomitant]
  7. INDOMETHACIN [Concomitant]
  8. SYNTHROID [Concomitant]
  9. LISINOPRIL [Concomitant]
  10. LORATADINE [Concomitant]
  11. LOVASTATIN [Concomitant]
  12. OMEPRAZOLE [Concomitant]
  13. PANCRELIPASE [Concomitant]
  14. TAMSULOSIN HCL [Concomitant]
  15. TRAZODONE HCL [Concomitant]
  16. VARDENAFIL HCL [Concomitant]

REACTIONS (3)
  - GASTRITIS EROSIVE [None]
  - GASTROINTESTINAL HAEMORRHAGE [None]
  - MELAENA [None]
